FAERS Safety Report 11936575 (Version 1)
Quarter: 2016Q1

REPORT INFORMATION
  Report Type: Spontaneous
  Country: US (occurrence: US)
  Receive Date: 20160121
  Receipt Date: 20160121
  Transmission Date: 20160526
  Serious: Yes (Hospitalization, Other)
  Sender: FDA-Public Use
  Company Number: US-PFIZER INC-2016021552

PATIENT
  Age: 53 Year
  Sex: Female

DRUGS (8)
  1. CHLORAMPHENICOL [Suspect]
     Active Substance: CHLORAMPHENICOL
     Dosage: 6 G, DAILY
     Route: 048
  2. CHLORAMPHENICOL [Suspect]
     Active Substance: CHLORAMPHENICOL
     Dosage: 2 G, DIVIDED INTO 6 DOSES
     Route: 048
  3. MORPHINE [Concomitant]
     Active Substance: MORPHINE
     Dosage: UNK
  4. MAREZINE [Concomitant]
     Active Substance: CYCLIZINE LACTATE
     Dosage: UNK
  5. CHLORAMPHENICOL [Suspect]
     Active Substance: CHLORAMPHENICOL
     Dosage: 2 G, 4X/DAY (EVERY 6 HOURS)
     Route: 048
  6. CHLORAMPHENICOL [Suspect]
     Active Substance: CHLORAMPHENICOL
     Dosage: 3 G, DAILY
     Route: 048
  7. CHLORAMPHENICOL [Suspect]
     Active Substance: CHLORAMPHENICOL
     Dosage: 8 G, DAILY
     Route: 042
  8. CHLORAMPHENICOL [Suspect]
     Active Substance: CHLORAMPHENICOL
     Dosage: 8 G, DAILY
     Route: 048

REACTIONS (1)
  - Encephalopathy [Recovered/Resolved]
